FAERS Safety Report 15414275 (Version 1)
Quarter: 2018Q3

REPORT INFORMATION
  Report Type: Report from Study
  Country: DE (occurrence: DE)
  Receive Date: 20180921
  Receipt Date: 20180921
  Transmission Date: 20181010
  Serious: Yes (Other)
  Sender: FDA-Public Use
  Company Number: DE-CASPER PHARMA LLC-2018CAS000085

PATIENT
  Sex: Female

DRUGS (3)
  1. ALLOPURINOL. [Suspect]
     Active Substance: ALLOPURINOL
     Indication: PRODUCT USED FOR UNKNOWN INDICATION
     Dosage: UNK MILLIGRAM, QD
     Route: 065
  2. CICLOSPORINE [Suspect]
     Active Substance: CYCLOSPORINE
     Dosage: UNK MILLIGRAM, QD
     Route: 065
  3. MYCOPHENOLATE [Suspect]
     Active Substance: MYCOPHENOLIC ACID
     Route: 065

REACTIONS (2)
  - Abortion spontaneous [Unknown]
  - Amniotic cavity infection [Unknown]
